FAERS Safety Report 8172830-4 (Version None)
Quarter: 2012Q1

REPORT INFORMATION
  Report Type: 
  Country: None (occurrence: None)
  Receive Date: 20120229
  Receipt Date: 20111105
  Transmission Date: 20120608
  Serious: No
  Sender: FDA-Public Use
  Company Number: US-VIIV HEALTHCARE LIMITED-A0954220A

PATIENT
  Sex: Male

DRUGS (1)
  1. ZIAGEN [Suspect]
     Route: 065

REACTIONS (1)
  - ABNORMAL DREAMS [None]
